FAERS Safety Report 24932165 (Version 1)
Quarter: 2025Q1

REPORT INFORMATION
  Report Type: Report from Study
  Country: US (occurrence: US)
  Receive Date: 20250205
  Receipt Date: 20250205
  Transmission Date: 20250408
  Serious: No
  Sender: EXELIXIS
  Company Number: US-EXELIXIS-CABO-24079819

PATIENT
  Sex: Male

DRUGS (1)
  1. CABOMETYX [Suspect]
     Active Substance: CABOZANTINIB S-MALATE
     Indication: Renal cell carcinoma
     Dosage: 60 MG, QD
     Route: 048
     Dates: end: 202407

REACTIONS (9)
  - Taste disorder [Unknown]
  - Thyroid disorder [Unknown]
  - Pain in extremity [Unknown]
  - Diarrhoea [Unknown]
  - Decreased appetite [Unknown]
  - Stomatitis [Recovered/Resolved]
  - Weight decreased [Unknown]
  - Liver disorder [Unknown]
  - Dry mouth [Unknown]
